FAERS Safety Report 11418557 (Version 2)
Quarter: 2016Q1

REPORT INFORMATION
  Report Type: Report from Study
  Country: SE (occurrence: SE)
  Receive Date: 20150826
  Receipt Date: 20160126
  Transmission Date: 20160525
  Serious: Yes (Life-Threatening)
  Sender: FDA-Public Use
  Company Number: SE-AMGEN-SWENI2015085232

PATIENT
  Age: 43 Year
  Sex: Female

DRUGS (1)
  1. ETANERCEPT [Suspect]
     Active Substance: ETANERCEPT
     Indication: PSORIATIC ARTHROPATHY
     Dosage: 50 MG, QWK
     Route: 065
     Dates: start: 19980806, end: 20140708

REACTIONS (2)
  - Angioedema [Recovered/Resolved]
  - Urticaria [Recovered/Resolved]

NARRATIVE: CASE EVENT DATE: 20140708
